FAERS Safety Report 13353703 (Version 7)
Quarter: 2022Q2

REPORT INFORMATION
  Report Type: Spontaneous
  Country: FR (occurrence: FR)
  Receive Date: 20170321
  Receipt Date: 20220425
  Transmission Date: 20220721
  Serious: Yes (Death, Life-Threatening, Hospitalization, Other)
  Sender: FDA-Public Use
  Company Number: PHHY2017FR036805

PATIENT
  Age: 34 Year
  Sex: Male

DRUGS (15)
  1. RISPERIDONE [Suspect]
     Active Substance: RISPERIDONE
     Indication: Bipolar disorder
     Dosage: UNK
     Route: 065
  2. ACETAMINOPHEN [Suspect]
     Active Substance: ACETAMINOPHEN
     Indication: Analgesic therapy
     Dosage: 1 G
     Route: 065
  3. TROPATEPINE HYDROCHLORIDE [Suspect]
     Active Substance: TROPATEPINE HYDROCHLORIDE
     Indication: Agitation
     Dosage: 10 MG, QD
     Route: 048
     Dates: start: 20120605, end: 20120625
  4. TROPATEPINE HYDROCHLORIDE [Suspect]
     Active Substance: TROPATEPINE HYDROCHLORIDE
     Indication: Aggression
  5. TROPATEPINE HYDROCHLORIDE [Suspect]
     Active Substance: TROPATEPINE HYDROCHLORIDE
     Indication: Bipolar disorder
  6. TROPATEPINE HYDROCHLORIDE [Suspect]
     Active Substance: TROPATEPINE HYDROCHLORIDE
     Indication: Extrapyramidal disorder
  7. VALIUM [Suspect]
     Active Substance: DIAZEPAM
     Indication: Bipolar disorder
     Dosage: 30 MG, QD
     Route: 048
     Dates: start: 20120614, end: 20120625
  8. VALPROIC ACID [Suspect]
     Active Substance: VALPROIC ACID
     Indication: Bipolar disorder
     Dosage: 1000 MG, QD
     Route: 065
     Dates: start: 20120614
  9. LOXAPINE [Suspect]
     Active Substance: LOXAPINE
     Indication: Bipolar disorder
     Dosage: 375 MG QD, (375 MG, QD (275 MG, QD+100 MG AS REQUIRED))
     Route: 048
     Dates: start: 20120614
  10. LOXAPINE [Suspect]
     Active Substance: LOXAPINE
     Indication: Extrapyramidal disorder
     Dosage: 100 MG
     Route: 030
     Dates: start: 20120625
  11. LOXAPINE [Suspect]
     Active Substance: LOXAPINE
     Indication: Bipolar disorder
     Dosage: 100 MG, BID (PLUS 100 DROPS WHEN NEEDED)
     Route: 048
     Dates: start: 20120614, end: 20120625
  12. QUETIAPINE FUMARATE [Suspect]
     Active Substance: QUETIAPINE FUMARATE
     Indication: Agitation
     Dosage: 600 MG, QD (DRUG REPORTED AS XEROQUEL)
     Route: 048
     Dates: start: 20120605, end: 20120625
  13. QUETIAPINE FUMARATE [Suspect]
     Active Substance: QUETIAPINE FUMARATE
     Indication: Aggression
  14. QUETIAPINE FUMARATE [Suspect]
     Active Substance: QUETIAPINE FUMARATE
     Indication: Bipolar disorder
  15. QUETIAPINE FUMARATE [Suspect]
     Active Substance: QUETIAPINE FUMARATE
     Indication: Extrapyramidal disorder

REACTIONS (42)
  - Candida infection [Fatal]
  - Large intestine perforation [Fatal]
  - Cardiac arrest [Fatal]
  - Metabolic acidosis [Fatal]
  - Septic shock [Fatal]
  - Intestinal ischaemia [Fatal]
  - Pneumonia pseudomonal [Fatal]
  - Subileus [Fatal]
  - Gastric haemorrhage [Fatal]
  - Staphylococcal bacteraemia [Fatal]
  - Necrotising colitis [Fatal]
  - Multiple organ dysfunction syndrome [Fatal]
  - Renal failure [Fatal]
  - Systemic mycosis [Fatal]
  - Intestinal obstruction [Fatal]
  - Mesenteric vascular occlusion [Fatal]
  - Systemic bacterial infection [Fatal]
  - Hepatic cytolysis [Fatal]
  - Condition aggravated [Fatal]
  - Colitis ischaemic [Fatal]
  - Peripheral coldness [Fatal]
  - Blood pressure systolic increased [Fatal]
  - Malaise [Fatal]
  - Tachycardia [Fatal]
  - Livedo reticularis [Fatal]
  - Fungaemia [Fatal]
  - Stoma site ischaemia [Fatal]
  - Gastrointestinal disorder [Fatal]
  - Lung disorder [Fatal]
  - Hyperhidrosis [Fatal]
  - Sepsis [Fatal]
  - Hepatic enzyme increased [Fatal]
  - Acute kidney injury [Fatal]
  - Gastrointestinal stoma necrosis [Fatal]
  - Abdominal pain [Fatal]
  - Vomiting [Fatal]
  - Constipation [Fatal]
  - Haemorrhage [Fatal]
  - Hypothermia [Fatal]
  - Pain [Unknown]
  - Libido decreased [Unknown]
  - Erectile dysfunction [Unknown]

NARRATIVE: CASE EVENT DATE: 20120623
